FAERS Safety Report 19831653 (Version 2)
Quarter: 2021Q3

REPORT INFORMATION
  Report Type: Spontaneous
  Country: US (occurrence: US)
  Receive Date: 20210914
  Receipt Date: 20210916
  Transmission Date: 20211014
  Serious: No
  Sender: FDA-Public Use
  Company Number: US-VIVUS, INC.-2020V1000224

PATIENT
  Age: 56 Year
  Sex: Female
  Weight: 96.7 kg

DRUGS (4)
  1. LEVOTHYROXINE. [Concomitant]
     Active Substance: LEVOTHYROXINE
     Indication: HYPOTHYROIDISM
     Route: 048
     Dates: start: 202002
  2. LASIX [Concomitant]
     Active Substance: FUROSEMIDE
     Dosage: 4X WK
     Route: 048
  3. VITAMIN [Concomitant]
     Active Substance: VITAMINS
     Indication: DYSPEPSIA
     Route: 048
     Dates: start: 201907
  4. QSYMIA [Suspect]
     Active Substance: PHENTERMINE HYDROCHLORIDE\TOPIRAMATE
     Indication: WEIGHT DECREASED
     Route: 048
     Dates: start: 20200912

REACTIONS (1)
  - Palpitations [Recovered/Resolved]

NARRATIVE: CASE EVENT DATE: 20200912
